FAERS Safety Report 5276645-6 (Version None)
Quarter: 2007Q1

REPORT INFORMATION
  Report Type: 
  Country: None (occurrence: None)
  Receive Date: 20070327
  Receipt Date: 20070323
  Transmission Date: 20070707
  Serious: Yes (Hospitalization)
  Sender: FDA-Public Use
  Company Number: IT-BRISTOL-MYERS SQUIBB COMPANY-13726013

PATIENT
  Age: 22 Year
  Sex: Female
  Weight: 74 kg

DRUGS (3)
  1. ABILIFY [Suspect]
     Route: 048
     Dates: start: 20050901
  2. DEPAKENE [Concomitant]
     Dates: start: 20040519
  3. AKINETON [Concomitant]
     Dates: start: 20060131

REACTIONS (1)
  - RENAL COLIC [None]
